FAERS Safety Report 22034396 (Version 1)
Quarter: 2023Q1

REPORT INFORMATION
  Report Type: Spontaneous
  Country: US (occurrence: None)
  Receive Date: 20230222
  Receipt Date: 20230222
  Transmission Date: 20230418
  Serious: No
  Sender: FDA-Public Use
  Company Number: None

PATIENT
  Age: 52 Year
  Sex: Male

DRUGS (1)
  1. MESALAMINE [Suspect]
     Active Substance: MESALAMINE
     Dosage: FREQUENCY : 4 TIMES A DAY;?
     Route: 048

REACTIONS (3)
  - Diarrhoea [None]
  - Abdominal pain [None]
  - Frequent bowel movements [None]

NARRATIVE: CASE EVENT DATE: 20230222
